FAERS Safety Report 25842108 (Version 3)
Quarter: 2025Q4

REPORT INFORMATION
  Report Type: Spontaneous
  Country: EU (occurrence: EU)
  Receive Date: 20250924
  Receipt Date: 20251114
  Transmission Date: 20260118
  Serious: Yes (Hospitalization, Other)
  Sender: AMGEN
  Company Number: EU-UCBSA-2025058742

PATIENT
  Age: 82 Year
  Sex: Female
  Weight: 51 kg

DRUGS (3)
  1. EVENITY [Suspect]
     Active Substance: ROMOSOZUMAB-AQQG
     Indication: Osteoporosis
     Dosage: 210 MILLIGRAM, MONTHLY (QM)
     Route: 058
     Dates: start: 20241211
  2. Calperos [Concomitant]
     Indication: Prophylaxis
     Dosage: UNK
     Route: 048
     Dates: start: 202509
  3. CHOLECALCIFEROL [Concomitant]
     Active Substance: CHOLECALCIFEROL
     Indication: Prophylaxis
     Dosage: 4000 INTERNATIONAL UNIT
     Route: 048
     Dates: start: 202509

REACTIONS (3)
  - Fall [Unknown]
  - Femur fracture [Recovered/Resolved with Sequelae]
  - Surgery [Unknown]

NARRATIVE: CASE EVENT DATE: 20250101
